FAERS Safety Report 10778906 (Version 3)
Quarter: 2015Q3

REPORT INFORMATION
  Report Type: Spontaneous
  Country: US (occurrence: None)
  Receive Date: 20150205
  Receipt Date: 20150702
  Transmission Date: 20151125
  Serious: Yes (Death, Other)
  Sender: FDA-Public Use
  Company Number: ADR-2015-00249

PATIENT
  Age: 28 Year
  Sex: Female

DRUGS (1)
  1. BACLOFEN INTRATHECAL 2000MCG/ML [Suspect]
     Active Substance: BACLOFEN
     Indication: MUSCLE SPASTICITY

REACTIONS (6)
  - Pneumopericardium [None]
  - Femur fracture [None]
  - Fall [None]
  - Meningitis bacterial [None]
  - Pneumonia [None]
  - Procedural complication [None]

NARRATIVE: CASE EVENT DATE: 20141213
